FAERS Safety Report 16502666 (Version 2)
Quarter: 2019Q3

REPORT INFORMATION
  Report Type: Spontaneous
  Country: US (occurrence: US)
  Receive Date: 20190701
  Receipt Date: 20190718
  Transmission Date: 20191004
  Serious: No
  Sender: FDA-Public Use
  Company Number: US-ASTRAZENECA-2019SE89274

PATIENT
  Age: 23129 Day
  Sex: Female
  Weight: 60.8 kg

DRUGS (6)
  1. BYDUREON BCISE [Suspect]
     Active Substance: EXENATIDE
     Indication: TYPE 2 DIABETES MELLITUS
     Route: 058
     Dates: start: 20190614
  2. METFORMIN [Concomitant]
     Active Substance: METFORMIN HYDROCHLORIDE
     Indication: TYPE 2 DIABETES MELLITUS
     Route: 048
  3. TRACEBA [Concomitant]
     Indication: TYPE 2 DIABETES MELLITUS
     Dates: start: 20190531
  4. METFORMIN [Concomitant]
     Active Substance: METFORMIN HYDROCHLORIDE
     Indication: TYPE 2 DIABETES MELLITUS
     Dosage: DAILY
     Route: 048
     Dates: start: 2006
  5. INSULIN [Concomitant]
     Active Substance: INSULIN NOS
  6. GLIMEPIRIDE. [Concomitant]
     Active Substance: GLIMEPIRIDE
     Indication: TYPE 2 DIABETES MELLITUS
     Route: 048
     Dates: start: 20190601

REACTIONS (4)
  - Injection site haemorrhage [Unknown]
  - Incorrect dose administered by device [Unknown]
  - Wrong technique in device usage process [Unknown]
  - Device issue [Unknown]

NARRATIVE: CASE EVENT DATE: 20190614
